FAERS Safety Report 4697160-4 (Version None)
Quarter: 2005Q2

REPORT INFORMATION
  Report Type: 
  Country: None (occurrence: None)
  Receive Date: 20050621
  Receipt Date: 20050621
  Transmission Date: 20051028
  Serious: Yes (Other)
  Sender: FDA-Public Use
  Company Number: None

PATIENT
  Age: 64 Year
  Sex: Female
  Weight: 65.7716 kg

DRUGS (8)
  1. NEXIUM [Suspect]
     Indication: PROPHYLAXIS
     Dosage: 40 MG BID ORAL
     Route: 048
  2. PLACEBO [Suspect]
     Indication: PROPHYLAXIS
     Route: 048
  3. SYNTHROID [Concomitant]
  4. CLIMARA [Concomitant]
  5. ATENOLOL [Concomitant]
  6. CALCIUM GLUCONATE [Concomitant]
  7. AMITRIPTYLINE HCL [Concomitant]
  8. ETODOLAC [Concomitant]

REACTIONS (3)
  - DIPLOPIA [None]
  - PERIORBITAL OEDEMA [None]
  - SWELLING FACE [None]
